FAERS Safety Report 4317223-2 (Version None)
Quarter: 2004Q1

REPORT INFORMATION
  Report Type: 
  Country: None (occurrence: None)
  Receive Date: 20040312
  Receipt Date: 20040225
  Transmission Date: 20041129
  Serious: Yes (Other)
  Sender: FDA-Public Use
  Company Number: 701313

PATIENT
  Age: 66 Year
  Sex: Male
  Weight: 81.6475 kg

DRUGS (4)
  1. AMEVIVE [Suspect]
     Indication: PSORIASIS
     Dosage: 15 MG QW IM
     Route: 030
     Dates: start: 20030101, end: 20030801
  2. TRIAMCINOLONE [Concomitant]
  3. TEMOVATE [Concomitant]
  4. METHOTREXATE [Concomitant]

REACTIONS (4)
  - ANGINA PECTORIS [None]
  - CARDIAC DISORDER [None]
  - CONDITION AGGRAVATED [None]
  - LUNG NEOPLASM MALIGNANT [None]
